FAERS Safety Report 23242406 (Version 2)
Quarter: 2024Q1

REPORT INFORMATION
  Report Type: Spontaneous
  Country: GB (occurrence: GB)
  Receive Date: 20231129
  Receipt Date: 20240103
  Transmission Date: 20240409
  Serious: Yes (Hospitalization, Other)
  Sender: FDA-Public Use
  Company Number: GB-HIKMA PHARMACEUTICALS-GB-H14001-23-66986

PATIENT
  Age: 47 Year
  Sex: Female
  Weight: 63.9 kg

DRUGS (6)
  1. CARBOPLATIN [Suspect]
     Active Substance: CARBOPLATIN
     Indication: Anal cancer
     Dosage: 500 MG
     Route: 042
     Dates: start: 20230519, end: 20230519
  2. CARBOPLATIN [Suspect]
     Active Substance: CARBOPLATIN
     Dosage: 400 MG
     Route: 050
     Dates: start: 20230530, end: 20230530
  3. PACLITAXEL [Suspect]
     Active Substance: PACLITAXEL
     Indication: Anal squamous cell carcinoma
     Dosage: 80 MG/M2 (132 MG)
     Route: 042
     Dates: start: 20230519, end: 20230519
  4. PACLITAXEL [Suspect]
     Active Substance: PACLITAXEL
     Dosage: 70 MG/M2(120 MG)
     Dates: start: 20230630, end: 20230630
  5. PACLITAXEL [Suspect]
     Active Substance: PACLITAXEL
     Dosage: 70 MG/M2
     Route: 042
     Dates: start: 20230804, end: 20230804
  6. INVESTIGATIONAL PRODUCT [Suspect]
     Active Substance: INVESTIGATIONAL PRODUCT
     Indication: Anal squamous cell carcinoma
     Dosage: 500 MG
     Route: 042
     Dates: start: 20230519

REACTIONS (5)
  - Rectal haemorrhage [Unknown]
  - Diarrhoea [Recovered/Resolved]
  - Anal incontinence [Unknown]
  - Eyelid oedema [Unknown]
  - Erythema of eyelid [Unknown]

NARRATIVE: CASE EVENT DATE: 20231021
